FAERS Safety Report 16165481 (Version 2)
Quarter: 2019Q2

REPORT INFORMATION
  Report Type: Spontaneous
  Country: US (occurrence: US)
  Receive Date: 20190405
  Receipt Date: 20190508
  Transmission Date: 20190711
  Serious: Yes (Hospitalization, Other)
  Sender: FDA-Public Use
  Company Number: US-ASTRAZENECA-2019SE52764

PATIENT

DRUGS (6)
  1. ASPIRIN. [Concomitant]
     Active Substance: ASPIRIN
  2. RAMIPRIL. [Concomitant]
     Active Substance: RAMIPRIL
  3. ONGLYZA [Suspect]
     Active Substance: SAXAGLIPTIN HYDROCHLORIDE
     Indication: TYPE 2 DIABETES MELLITUS
     Route: 048
     Dates: start: 20140625
  4. ONGLYZA [Suspect]
     Active Substance: SAXAGLIPTIN HYDROCHLORIDE
     Indication: TYPE 2 DIABETES MELLITUS
     Route: 065
     Dates: start: 20140625, end: 201508
  5. METOPROLOL. [Concomitant]
     Active Substance: METOPROLOL
  6. DIAZEPAM. [Concomitant]
     Active Substance: DIAZEPAM

REACTIONS (4)
  - Cardiac failure [Unknown]
  - Cardiac failure congestive [Unknown]
  - Cardiac disorder [Unknown]
  - Myocardial infarction [Unknown]

NARRATIVE: CASE EVENT DATE: 20140924
